FAERS Safety Report 4727127-9 (Version None)
Quarter: 2005Q3

REPORT INFORMATION
  Report Type: 
  Country: None (occurrence: None)
  Receive Date: 20050728
  Receipt Date: 20050707
  Transmission Date: 20060218
  Serious: Yes (Other)
  Sender: FDA-Public Use
  Company Number: BR-BRISTOL-MYERS SQUIBB COMPANY-13053426

PATIENT
  Age: 83 Year
  Sex: Female
  Weight: 58 kg

DRUGS (3)
  1. TEQUIN [Suspect]
     Indication: LUNG INFECTION
     Route: 048
     Dates: start: 20050705
  2. GLUCOFORMIN [Concomitant]
  3. ANCORON [Concomitant]

REACTIONS (3)
  - AMNESIA [None]
  - HYPOGLYCAEMIA [None]
  - HYPOTENSION [None]
